FAERS Safety Report 19456205 (Version 1)
Quarter: 2021Q2

REPORT INFORMATION
  Report Type: Report from Study
  Country: IT (occurrence: IT)
  Receive Date: 20210624
  Receipt Date: 20210624
  Transmission Date: 20210717
  Serious: Yes (Hospitalization)
  Sender: FDA-Public Use
  Company Number: IT-TEVA-2021-IT-1923948

PATIENT
  Age: 70 Year
  Sex: Female
  Weight: 54 kg

DRUGS (4)
  1. CARBOPLATIN. [Suspect]
     Active Substance: CARBOPLATIN
     Indication: OVARIAN CANCER
     Dosage: 350MG
     Route: 042
     Dates: start: 20210406
  2. POTASSIUM CHLORIDE. [Concomitant]
     Active Substance: POTASSIUM CHLORIDE
     Indication: INAPPROPRIATE ANTIDIURETIC HORMONE SECRETION
     Dosage: 2DF
     Route: 048
     Dates: start: 20210310
  3. SODIUM CHLORIDE. [Concomitant]
     Active Substance: SODIUM CHLORIDE
     Indication: INAPPROPRIATE ANTIDIURETIC HORMONE SECRETION
     Dosage: 4GM
     Route: 048
     Dates: start: 20210310
  4. FUROSEMIDE L.F.M. 25 MG COMPRESSE [Concomitant]
     Indication: POLYURIA
     Dosage: 1DF
     Route: 048
     Dates: start: 20210310

REACTIONS (4)
  - Abdominal pain [Recovering/Resolving]
  - Ascites [Recovering/Resolving]
  - Nausea [Recovering/Resolving]
  - Pelvic pain [Recovering/Resolving]

NARRATIVE: CASE EVENT DATE: 20210419
